FAERS Safety Report 18296505 (Version 1)
Quarter: 2020Q3

REPORT INFORMATION
  Report Type: Spontaneous
  Country: PL (occurrence: PL)
  Receive Date: 20200922
  Receipt Date: 20200922
  Transmission Date: 20201103
  Serious: Yes (Death)
  Sender: FDA-Public Use
  Company Number: PL-FRESENIUS KABI-FK202009720

PATIENT
  Age: 9 Year
  Sex: Male

DRUGS (12)
  1. VINCRISTINE [Suspect]
     Active Substance: VINCRISTINE
     Indication: RHABDOMYOSARCOMA
     Dosage: CUMULATIVE DOSE: 16.5 MG/M2
     Route: 065
     Dates: end: 200908
  2. CYCLOPHOSPHAMIDE. [Suspect]
     Active Substance: CYCLOPHOSPHAMIDE
     Indication: RHABDOMYOSARCOMA
     Dosage: CUMULATIVE DOSE: 1000 MG/M2
     Route: 065
     Dates: end: 200908
  3. DOXORUBICIN [Suspect]
     Active Substance: DOXORUBICIN
     Indication: RHABDOMYOSARCOMA
     Dosage: CUMULATIVE DOSE: 160 MG/M2
     Route: 065
     Dates: end: 200908
  4. IDARUBICIN [Suspect]
     Active Substance: IDARUBICIN
     Indication: RHABDOMYOSARCOMA
     Dosage: CUMULATIVE DOSE: 80 MG/M2
     Route: 065
     Dates: end: 200908
  5. TOPOTECAN [Suspect]
     Active Substance: TOPOTECAN HYDROCHLORIDE
     Indication: RHABDOMYOSARCOMA
     Dosage: CUMULATIVE DOSE: 28 MG/M2
     Route: 065
     Dates: end: 200908
  6. ETOPOSIDE. [Suspect]
     Active Substance: ETOPOSIDE
     Indication: RHABDOMYOSARCOMA
     Dosage: CUMULATIVE DOSE: 3600 MG/M2
     Route: 042
     Dates: end: 200908
  7. ETOPOSIDE. [Suspect]
     Active Substance: ETOPOSIDE
     Dosage: CUMULATIVE DOSE: 2000 MG/M2
     Route: 048
  8. CARBOPLATIN. [Suspect]
     Active Substance: CARBOPLATIN
     Indication: RHABDOMYOSARCOMA
     Dosage: CUMULATIVE DOSE: 6600 MG/M2
     Route: 065
     Dates: end: 200908
  9. NO DRUG NAME [Suspect]
     Active Substance: UNSPECIFIED INGREDIENT
     Indication: RHABDOMYOSARCOMA
     Dosage: CUMULATIVE DOSE: 3 MG/M2
     Route: 065
     Dates: end: 200908
  10. IRINOTECAN (MANUFACTURER UNKNOWN) [Suspect]
     Active Substance: IRINOTECAN
     Indication: RHABDOMYOSARCOMA
     Dosage: CUMULATIVE DOSE: 65MG/M2
     Route: 065
     Dates: end: 200908
  11. IFOSFAMIDE. [Suspect]
     Active Substance: IFOSFAMIDE
     Indication: RHABDOMYOSARCOMA
     Dosage: CUMULATIVE DOSE: 54000 MG/M2
     Route: 065
     Dates: end: 200908
  12. TROFOSFAMIDE [Suspect]
     Active Substance: TROFOSFAMIDE
     Indication: RHABDOMYOSARCOMA
     Dosage: CUMULATIVE DOSE: 12000 MG/M2
     Route: 065
     Dates: end: 200908

REACTIONS (2)
  - Myelodysplastic syndrome [Fatal]
  - Acute myeloid leukaemia [Fatal]
